FAERS Safety Report 7737418-5 (Version None)
Quarter: 2011Q3

REPORT INFORMATION
  Report Type: 
  Country: None (occurrence: None)
  Receive Date: 20110908
  Receipt Date: 20110826
  Transmission Date: 20111222
  Serious: Yes (Hospitalization)
  Sender: FDA-Public Use
  Company Number: US-GLAXOSMITHKLINE-A0802276A

PATIENT
  Sex: Male
  Weight: 100.9 kg

DRUGS (16)
  1. ALLOPURINOL [Concomitant]
  2. LISINOPRIL [Concomitant]
  3. BUSPAR [Concomitant]
  4. ASPIRIN [Concomitant]
  5. ALBUTEROL SULFATE AUTOHALER [Concomitant]
  6. GLYBURIDE [Concomitant]
  7. LASIX [Concomitant]
  8. NORVASC [Concomitant]
  9. TERAZOSIN HCL [Concomitant]
  10. PRILOSEC [Concomitant]
  11. TOPROL-XL [Concomitant]
  12. GLUCOPHAGE [Concomitant]
  13. ZOCOR [Concomitant]
  14. AVANDIA [Suspect]
     Indication: DIABETES MELLITUS
     Dosage: 4MG PER DAY
     Route: 048
     Dates: start: 20031001, end: 20071001
  15. CELEBREX [Concomitant]
  16. NEURONTIN [Concomitant]

REACTIONS (5)
  - CEREBROVASCULAR ACCIDENT [None]
  - FALL [None]
  - ATRIAL FIBRILLATION [None]
  - TRANSIENT ISCHAEMIC ATTACK [None]
  - CARDIAC FAILURE CONGESTIVE [None]
